FAERS Safety Report 10523088 (Version 2)
Quarter: 2014Q4

REPORT INFORMATION
  Report Type: Spontaneous
  Country: US (occurrence: US)
  Receive Date: 20141016
  Receipt Date: 20141023
  Transmission Date: 20150528
  Serious: Yes (Death)
  Sender: FDA-Public Use
  Company Number: US-B.I. PHARMACEUTICALS,INC./RIDGEFIELD-2014-BI-49236BP

PATIENT
  Age: 51 Year
  Sex: Male
  Weight: 50.8 kg

DRUGS (12)
  1. SPIRIVA [Suspect]
     Active Substance: TIOTROPIUM BROMIDE MONOHYDRATE
     Indication: EMPHYSEMA
     Dosage: 18 MCG
     Route: 055
     Dates: start: 2011
  2. OXYCODONE HCL [Concomitant]
     Active Substance: OXYCODONE HYDROCHLORIDE
     Indication: EMPHYSEMA
     Dosage: 20 MG
     Route: 048
     Dates: start: 2011
  3. ASPIRIN. [Concomitant]
     Active Substance: ASPIRIN
     Indication: CARDIAC DISORDER
     Dosage: 81 MG
     Route: 048
     Dates: start: 2009
  4. MUCINEX [Concomitant]
     Active Substance: GUAIFENESIN
     Indication: EMPHYSEMA
     Dosage: 1200 MG
     Route: 048
     Dates: start: 201408
  5. PULMOCORT [Concomitant]
     Indication: EMPHYSEMA
     Dosage: 1 MG
     Route: 055
     Dates: start: 2011
  6. DULCOLAX STOOL SOFTENERS [Concomitant]
     Indication: CONSTIPATION
     Route: 048
     Dates: start: 201401
  7. PREDNISONE. [Concomitant]
     Active Substance: PREDNISONE
     Indication: EMPHYSEMA
     Dosage: 40 MG
     Route: 048
     Dates: start: 201408
  8. PERFOROMIST [Concomitant]
     Active Substance: FORMOTEROL FUMARATE DIHYDRATE
     Indication: EMPHYSEMA
     Dosage: 40 MCG
     Route: 055
     Dates: start: 2011
  9. ROXINOL [Concomitant]
     Indication: DYSPNOEA
     Route: 048
     Dates: start: 201405
  10. ALPRAZOLAM. [Concomitant]
     Active Substance: ALPRAZOLAM
     Indication: EMPHYSEMA
     Dosage: 2 MG
     Route: 050
     Dates: start: 2011
  11. FENTANYL. [Concomitant]
     Active Substance: FENTANYL
     Indication: EMPHYSEMA
     Dosage: FORMULATION: PATCH; STRENGTH: 50 MCG/HR
     Route: 061
     Dates: start: 20140525
  12. CLOPIDOGREL [Concomitant]
     Active Substance: CLOPIDOGREL BISULFATE
     Indication: CARDIAC DISORDER
     Dosage: 75 MG
     Route: 048
     Dates: start: 2009

REACTIONS (1)
  - Emphysema [Fatal]

NARRATIVE: CASE EVENT DATE: 20141005
